FAERS Safety Report 8801030 (Version 2)
Quarter: 2012Q4

REPORT INFORMATION
  Report Type: 
  Country: US (occurrence: US)
  Receive Date: 20120921
  Receipt Date: 20121011
  Transmission Date: 20130627
  Serious: Yes (Hospitalization, Other)
  Sender: FDA-Public Use
  Company Number: US-GLAXOSMITHKLINE-A0993739A

PATIENT
  Age: 45 Year
  Sex: Male

DRUGS (1)
  1. FLOLAN [Suspect]
     Indication: PRODUCT USED FOR UNKNOWN INDICATION
     Dosage: 24NGKM Continuous
     Route: 065
     Dates: start: 20111130

REACTIONS (6)
  - Cardiac failure [Recovering/Resolving]
  - Cor pulmonale [Recovering/Resolving]
  - Renal failure acute [Recovering/Resolving]
  - Weight increased [Recovering/Resolving]
  - Fluid retention [Recovering/Resolving]
  - Catheterisation cardiac [Recovering/Resolving]
